FAERS Safety Report 17637623 (Version 1)
Quarter: 2020Q2

REPORT INFORMATION
  Report Type: Spontaneous
  Country: US (occurrence: US)
  Receive Date: 20200407
  Receipt Date: 20200407
  Transmission Date: 20200713
  Serious: No
  Sender: FDA-Public Use
  Company Number: US-AUROBINDO-AUR-APL-2020-003847

PATIENT
  Age: 73 Year
  Sex: Female
  Weight: 68 kg

DRUGS (3)
  1. GUAIFENESINANDDEXTROMETHORPHAN1200/60MGEXTENDEDRELEASETABLET OTC [Suspect]
     Active Substance: DEXTROMETHORPHAN\GUAIFENESIN
     Indication: PRODUCT USED FOR UNKNOWN INDICATION
     Dosage: 01 OR 02 TABLETS PER DAY
     Route: 065
     Dates: start: 20200111
  2. GUAIFENESINANDDEXTROMETHORPHAN1200/60MGEXTENDEDRELEASETABLET OTC [Suspect]
     Active Substance: DEXTROMETHORPHAN\GUAIFENESIN
     Dosage: 2 DOSAGE FORM, AT NIGHT AT 11 PM
     Route: 065
     Dates: start: 20200112
  3. GUAIFENESINANDDEXTROMETHORPHAN1200/60MGEXTENDEDRELEASETABLET OTC [Suspect]
     Active Substance: DEXTROMETHORPHAN\GUAIFENESIN
     Dosage: 2 DOSAGE FORM, AT MORNING AT 11 AM
     Route: 065
     Dates: start: 20200113

REACTIONS (2)
  - Extra dose administered [Unknown]
  - Dizziness [Recovered/Resolved]

NARRATIVE: CASE EVENT DATE: 20200113
